FAERS Safety Report 4962961-1 (Version None)
Quarter: 2006Q2

REPORT INFORMATION
  Report Type: 
  Country: None (occurrence: None)
  Receive Date: 20060405
  Receipt Date: 20060324
  Transmission Date: 20061013
  Serious: Yes (Death, Hospitalization)
  Sender: FDA-Public Use
  Company Number: FR-JNJFOC-20060306600

PATIENT
  Age: 76 Year
  Sex: Male

DRUGS (15)
  1. HALDOL [Suspect]
     Indication: DRUG USE FOR UNKNOWN INDICATION
     Route: 048
  2. CIFLOX [Suspect]
     Indication: DRUG USE FOR UNKNOWN INDICATION
     Route: 048
  3. NOVONORM [Suspect]
     Indication: DRUG USE FOR UNKNOWN INDICATION
     Route: 048
  4. CORTANCYL [Suspect]
     Indication: DRUG USE FOR UNKNOWN INDICATION
     Route: 048
  5. TRIFLUCAN [Suspect]
     Indication: DRUG USE FOR UNKNOWN INDICATION
     Route: 048
  6. TRIFLUCAN [Suspect]
     Dosage: IV GIVEN PRIOR TO COMMENCING ORAL
     Route: 042
  7. ZELITREX [Concomitant]
  8. NEXIUM [Concomitant]
  9. NOVORAPID [Concomitant]
  10. LANTUS [Concomitant]
  11. IMUREL [Concomitant]
  12. VANCOMYCIN [Concomitant]
  13. AMIKLIN [Concomitant]
  14. FORTRUM [Concomitant]
  15. ZYRVOXYD [Concomitant]

REACTIONS (6)
  - ALANINE AMINOTRANSFERASE INCREASED [None]
  - ASPARTATE AMINOTRANSFERASE INCREASED [None]
  - DEATH [None]
  - HEPATIC FUNCTION ABNORMAL [None]
  - METABOLIC ACIDOSIS [None]
  - PROTHROMBIN TIME PROLONGED [None]
